FAERS Safety Report 22532411 (Version 4)
Quarter: 2023Q4

REPORT INFORMATION
  Report Type: Report from Study
  Country: US (occurrence: US)
  Receive Date: 20230607
  Receipt Date: 20231017
  Transmission Date: 20240110
  Serious: No
  Sender: FDA-Public Use
  Company Number: US-002147023-NVSC2023US126820

PATIENT
  Sex: Male

DRUGS (13)
  1. COSENTYX [Suspect]
     Active Substance: SECUKINUMAB
     Indication: Psoriatic arthropathy
     Dosage: 300 MG
     Route: 058
  2. COSENTYX [Suspect]
     Active Substance: SECUKINUMAB
     Indication: Psoriatic arthropathy
  3. COSENTYX [Suspect]
     Active Substance: SECUKINUMAB
     Indication: Psoriasis
  4. COSENTYX [Suspect]
     Active Substance: SECUKINUMAB
     Indication: Psoriasis
  5. ATORVASTATIN [Suspect]
     Active Substance: ATORVASTATIN
     Indication: Psoriatic arthropathy
     Dosage: UNK
     Route: 065
  6. ATORVASTATIN [Suspect]
     Active Substance: ATORVASTATIN
     Indication: Psoriatic arthropathy
  7. ATORVASTATIN [Suspect]
     Active Substance: ATORVASTATIN
     Indication: Psoriasis
  8. VITAMIN D3 [Suspect]
     Active Substance: CHOLECALCIFEROL
     Indication: Psoriatic arthropathy
     Dosage: UNK
     Route: 065
  9. METHOCARBAMOL [Suspect]
     Active Substance: METHOCARBAMOL
     Indication: Psoriatic arthropathy
     Dosage: UNK
     Route: 065
  10. MELOXICAM [Suspect]
     Active Substance: MELOXICAM
     Indication: Psoriatic arthropathy
     Dosage: UNK
     Route: 065
  11. HYDROCODONE [Suspect]
     Active Substance: HYDROCODONE
     Indication: Psoriatic arthropathy
     Dosage: UNK (HYDROCODONE 5MG-ACETAMINOPHEN 300MG)
     Route: 065
  12. DOXEPIN [Suspect]
     Active Substance: DOXEPIN
     Indication: Psoriatic arthropathy
     Route: 065
  13. PREDNISONE [Concomitant]
     Active Substance: PREDNISONE
     Indication: Product used for unknown indication
     Dosage: UNK
     Route: 065

REACTIONS (12)
  - Liver function test increased [Unknown]
  - Dandruff [Unknown]
  - Arthralgia [Unknown]
  - Pain [Unknown]
  - Musculoskeletal stiffness [Unknown]
  - Psoriasis [Unknown]
  - Tenderness [Unknown]
  - Peripheral swelling [Unknown]
  - Joint swelling [Unknown]
  - Musculoskeletal discomfort [Unknown]
  - Product use in unapproved indication [Unknown]
  - Treatment failure [Unknown]
